FAERS Safety Report 8649141 (Version 3)
Quarter: 2012Q4

REPORT INFORMATION
  Report Type: 
  Country: DK (occurrence: DK)
  Receive Date: 20120705
  Receipt Date: 20121030
  Transmission Date: 20130627
  Serious: Yes (Hospitalization)
  Sender: FDA-Public Use
  Company Number: DK-AMGEN-DNKCT2012041112

PATIENT
  Age: 64 Year
  Sex: Male
  Weight: 77.3 kg

DRUGS (5)
  1. ETANERCEPT [Suspect]
     Indication: RHEUMATOID ARTHRITIS
     Dosage: 50 mg, qwk
     Dates: start: 20071120, end: 20100701
  2. REMICADE [Concomitant]
     Indication: RHEUMATOID ARTHRITIS
     Dosage: 300 mg, 8 units weekly
     Dates: start: 20100928, end: 20110922
  3. MABTHERA [Concomitant]
     Indication: RHEUMATOID ARTHRITIS
     Dosage: 1000 mg, UNK
     Dates: start: 20110927
  4. METHOTREXATE [Concomitant]
     Indication: RHEUMATOID ARTHRITIS
     Dosage: Still administered
     Route: 048
     Dates: start: 20070828
  5. PREDNISOLON                        /00016201/ [Concomitant]
     Indication: RHEUMATOID ARTHRITIS
     Dosage: Gives stadig
     Dates: start: 20071009

REACTIONS (3)
  - Gastric cancer [Unknown]
  - Vomiting [Unknown]
  - Weight decreased [Unknown]
